FAERS Safety Report 8760739 (Version 2)
Quarter: 2012Q4

REPORT INFORMATION
  Report Type: 
  Country: DE (occurrence: DE)
  Receive Date: 20120829
  Receipt Date: 20121129
  Transmission Date: 20130627
  Serious: Yes (Life-Threatening, Hospitalization, Disabling, Other)
  Sender: FDA-Public Use
  Company Number: DE-ASTELLAS-2012US007315

PATIENT
  Age: 55 Year
  Sex: Female
  Weight: 74 kg

DRUGS (6)
  1. TARCEVA [Suspect]
     Indication: PANCREATIC CARCINOMA METASTATIC
     Dosage: 100 mg, Unknown/D
     Route: 048
     Dates: start: 20120606, end: 20120627
  2. GEMCITABINE [Suspect]
     Indication: PANCREATIC CARCINOMA METASTATIC
     Dosage: UNK
     Route: 065
  3. SIMVAHEXAL [Concomitant]
     Indication: LIPID METABOLISM DISORDER
     Dosage: 20 mg, UID/QD
     Route: 048
  4. TOREM                              /01036501/ [Concomitant]
     Indication: OEDEMA
     Dosage: 5 mg, Unknown/D
     Route: 048
  5. ACTRAPHANE [Concomitant]
     Indication: DIABETES MELLITUS
     Dosage: UNK
     Route: 065
  6. TAVOR /00273201/ [Concomitant]
     Indication: ANXIETY
     Dosage: UNK
     Route: 065
     Dates: start: 201111

REACTIONS (7)
  - Coronary artery disease [Unknown]
  - Coronary artery occlusion [Unknown]
  - Coronary ostial stenosis [Unknown]
  - Coronary artery stenosis [Unknown]
  - Congestive cardiomyopathy [Unknown]
  - Cardiac failure [Recovered/Resolved with Sequelae]
  - Oedema [Unknown]
